FAERS Safety Report 9933658 (Version 1)
Quarter: 2014Q1

REPORT INFORMATION
  Report Type: Spontaneous
  Country: US (occurrence: US)
  Receive Date: 20140228
  Receipt Date: 20140228
  Transmission Date: 20141002
  Serious: No
  Sender: FDA-Public Use
  Company Number: US-ABBVIE-13P-163-1184228-00

PATIENT
  Age: 62 Year
  Sex: Male
  Weight: 113.5 kg

DRUGS (7)
  1. ANDROGEL [Suspect]
     Indication: BLOOD TESTOSTERONE DECREASED
     Dosage: TWO PUMPS
     Route: 061
     Dates: start: 201311
  2. CELEXA [Concomitant]
     Indication: ANXIETY
  3. OXYCODONE [Concomitant]
     Indication: BACK PAIN
  4. OXYCONTIN [Concomitant]
     Indication: BACK PAIN
  5. ALPRAZOLAM [Concomitant]
     Indication: ANXIETY
  6. DIGOXIN [Concomitant]
     Indication: ATRIAL FIBRILLATION
  7. WARFARIN [Concomitant]
     Indication: ANTICOAGULANT THERAPY

REACTIONS (1)
  - Application site pain [Unknown]
